FAERS Safety Report 9360585 (Version 1)
Quarter: 2013Q2

REPORT INFORMATION
  Report Type: Spontaneous
  Country: GB (occurrence: GB)
  Receive Date: 20130621
  Receipt Date: 20130621
  Transmission Date: 20140414
  Serious: Yes (Death, Other)
  Sender: FDA-Public Use
  Company Number: PHFR2013GB003203

PATIENT
  Sex: Male

DRUGS (2)
  1. CLOZARIL [Suspect]
     Indication: SCHIZOPHRENIA, PARANOID TYPE
     Dosage: 900 MG,
     Route: 048
     Dates: start: 20010701
  2. ANTIEPILEPTICS [Concomitant]
     Indication: EPILEPSY
     Dosage: UNK

REACTIONS (4)
  - Epilepsy [Fatal]
  - Respiratory arrest [Unknown]
  - Balance disorder [Unknown]
  - Somnolence [Unknown]
